FAERS Safety Report 16596139 (Version 1)
Quarter: 2019Q3

REPORT INFORMATION
  Report Type: Spontaneous
  Country: FR (occurrence: FR)
  Receive Date: 20190719
  Receipt Date: 20190719
  Transmission Date: 20191004
  Serious: Yes (Death, Other)
  Sender: FDA-Public Use
  Company Number: FR-BRISTOL-MYERS SQUIBB COMPANY-BMS-2019-068730

PATIENT
  Age: 88 Year
  Sex: Female
  Weight: 78.8 kg

DRUGS (4)
  1. DOLIPRANE [Suspect]
     Active Substance: ACETAMINOPHEN
     Indication: PRODUCT USED FOR UNKNOWN INDICATION
     Dosage: UNK
     Route: 048
  2. ELIQUIS [Suspect]
     Active Substance: APIXABAN
     Indication: CEREBROVASCULAR ACCIDENT PROPHYLAXIS
     Dosage: UNK
     Route: 048
  3. TOUJEO [Suspect]
     Active Substance: INSULIN GLARGINE
     Indication: INSULIN-REQUIRING TYPE 2 DIABETES MELLITUS
     Dosage: UNK
     Route: 051
  4. SERESTA [Suspect]
     Active Substance: OXAZEPAM
     Indication: BEHAVIOUR DISORDER
     Dosage: 1 DOSAGE FORM, 1 DAY (FREQUENCY UNKNOWN)
     Route: 048
     Dates: start: 20190511, end: 20190511

REACTIONS (5)
  - Oxygen saturation decreased [Fatal]
  - Coma [Fatal]
  - Dehydration [Fatal]
  - Dyspnoea [Fatal]
  - Wrong dose [Fatal]

NARRATIVE: CASE EVENT DATE: 201905
